FAERS Safety Report 25109300 (Version 2)
Quarter: 2025Q3

REPORT INFORMATION
  Report Type: Spontaneous
  Country: US (occurrence: US)
  Receive Date: 20250323
  Receipt Date: 20250729
  Transmission Date: 20251020
  Serious: No
  Sender: SANOFI AVENTIS
  Company Number: US-SA-2025SA083245

PATIENT
  Age: 28 Year
  Sex: Female

DRUGS (2)
  1. DUPIXENT [Suspect]
     Active Substance: DUPILUMAB
     Indication: Eczema
     Route: 058
     Dates: start: 20240216, end: 20240216
  2. DUPIXENT [Suspect]
     Active Substance: DUPILUMAB
     Indication: Dermatitis
     Dosage: 300 MG, QOW
     Route: 058
     Dates: start: 20240301

REACTIONS (8)
  - Rash erythematous [Unknown]
  - Dermatitis [Unknown]
  - Rebound effect [Unknown]
  - Pruritus [Unknown]
  - Skin burning sensation [Unknown]
  - Condition aggravated [Unknown]
  - Rash [Recovered/Resolved]
  - Product use in unapproved indication [Unknown]
